FAERS Safety Report 20948312 (Version 1)
Quarter: 2022Q2

REPORT INFORMATION
  Report Type: Spontaneous
  Country: CA (occurrence: CA)
  Receive Date: 20220611
  Receipt Date: 20220611
  Transmission Date: 20220721
  Serious: Yes (Life-Threatening, Hospitalization, Other)
  Sender: FDA-Public Use
  Company Number: CA-SA-SAC20220608000431

PATIENT
  Age: 2 Year
  Sex: Male
  Weight: 14 kg

DRUGS (26)
  1. FLUDARABINE PHOSPHATE [Suspect]
     Active Substance: FLUDARABINE PHOSPHATE
     Indication: Stem cell transplant
     Dosage: 18 MG
     Route: 041
  2. ALEMTUZUMAB [Suspect]
     Active Substance: ALEMTUZUMAB
     Indication: Stem cell transplant
     Dosage: 2.5 MG
     Route: 041
  3. BUSULFAN [Suspect]
     Active Substance: BUSULFAN
     Indication: Stem cell transplant
     Dosage: 80 MG
     Route: 041
  4. AMLODIPINE [Concomitant]
     Active Substance: AMLODIPINE BESYLATE
  5. CALCIUM [Concomitant]
     Active Substance: CALCIUM
  6. VITAMIN D3 [Concomitant]
     Active Substance: CHOLECALCIFEROL
  7. CEFTAZIDIME [Concomitant]
     Active Substance: CEFTAZIDIME
  8. CETIRIZINE [Concomitant]
     Active Substance: CETIRIZINE HYDROCHLORIDE
  9. CICLESONIDE [Concomitant]
     Active Substance: CICLESONIDE
  10. DEXAMETHASONE [Concomitant]
     Active Substance: DEXAMETHASONE
  11. DIMENHYDRINATE [Concomitant]
     Active Substance: DIMENHYDRINATE
  12. DIPHENHYDRAMINE [Concomitant]
     Active Substance: DIPHENHYDRAMINE
  13. EPINEPHRINE [Concomitant]
     Active Substance: EPINEPHRINE
  14. FLUCONAZOLE [Concomitant]
     Active Substance: FLUCONAZOLE
  15. LEVETIRACETAM [Concomitant]
     Active Substance: LEVETIRACETAM
  16. LORAZEPAM [Concomitant]
     Active Substance: LORAZEPAM
  17. MAGNESIUM SULFATE [Concomitant]
     Active Substance: MAGNESIUM SULFATE
  18. MELATONIN [Concomitant]
     Active Substance: MELATONIN
  19. METHYLPREDNISOLONE [Concomitant]
     Active Substance: METHYLPREDNISOLONE
  20. METOCLOPRAMIDE [Concomitant]
     Active Substance: METOCLOPRAMIDE
  21. MYCOPHENOLATE MOFETIL [Concomitant]
     Active Substance: MYCOPHENOLATE MOFETIL
  22. ONDANSETRON [Concomitant]
     Active Substance: ONDANSETRON
  23. PIPERACILLIN SODIUM\TAZOBACTAM SODIUM [Concomitant]
     Active Substance: PIPERACILLIN SODIUM\TAZOBACTAM SODIUM
  24. ALBUTEROL [Concomitant]
     Active Substance: ALBUTEROL
  25. CYCLOSPORINE [Concomitant]
     Active Substance: CYCLOSPORINE
  26. SULFAMETHOXAZOLE\TRIMETHOPRIM [Concomitant]
     Active Substance: SULFAMETHOXAZOLE\TRIMETHOPRIM

REACTIONS (2)
  - Aplastic anaemia [Recovered/Resolved]
  - Mucosal inflammation [Recovered/Resolved]
